FAERS Safety Report 8238357-6 (Version None)
Quarter: 2012Q1

REPORT INFORMATION
  Report Type: 
  Country: None (occurrence: None)
  Receive Date: 20120326
  Receipt Date: 20120313
  Transmission Date: 20120608
  Serious: Yes (Hospitalization)
  Sender: FDA-Public Use
  Company Number: 7118127

PATIENT
  Age: 77 Year
  Sex: Female

DRUGS (4)
  1. LEVOTHYROXINE SODIUM [Suspect]
     Indication: PRODUCT USED FOR UNKNOWN INDICATION
     Dosage: ORAL
     Route: 048
     Dates: end: 20070101
  2. LEVOTHYROXINE SODIUM [Suspect]
     Indication: AUTOIMMUNE THYROIDITIS
     Dosage: 0.5 DF, ORAL
     Route: 048
     Dates: start: 20070101
  3. ACID (ACETYLSALICYLIC ACID) [Concomitant]
  4. ACETYLIC SALICYLIC [Concomitant]

REACTIONS (2)
  - BLOOD PRESSURE INCREASED [None]
  - TACHYCARDIA [None]
